FAERS Safety Report 8102404-2 (Version None)
Quarter: 2012Q1

REPORT INFORMATION
  Report Type: 
  Country: None (occurrence: None)
  Receive Date: 20120131
  Receipt Date: 20120131
  Transmission Date: 20120608
  Serious: No
  Sender: FDA-Public Use
  Company Number: None

PATIENT
  Age: 65 Year
  Sex: Male
  Weight: 103.6 kg

DRUGS (1)
  1. IODIXANOL [Suspect]
     Indication: CATHETERISATION CARDIAC
     Dosage: 60 ML ONCE IV
     Route: 042
     Dates: start: 20110707, end: 20110707

REACTIONS (1)
  - RASH PRURITIC [None]
